FAERS Safety Report 14659548 (Version 1)
Quarter: 2018Q1

REPORT INFORMATION
  Report Type: Spontaneous
  Country: US (occurrence: US)
  Receive Date: 20180320
  Receipt Date: 20180320
  Transmission Date: 20180509
  Serious: Yes (Hospitalization)
  Sender: FDA-Public Use
  Company Number: US-SUPERNUS PHARMACEUTICALS, INC.-2018SUP00073

PATIENT
  Age: 56 Year
  Sex: Female
  Weight: 58 kg

DRUGS (15)
  1. PHENOBARBITAL. [Suspect]
     Active Substance: PHENOBARBITAL
     Dosage: 32.4 MG, 1X/DAY
     Route: 065
     Dates: start: 201512, end: 20160106
  2. VITAMIN D [Concomitant]
     Active Substance: CHOLECALCIFEROL
     Dosage: 400 IU, 1X/DAY
     Route: 065
  3. TOPIRAMATE. [Suspect]
     Active Substance: TOPIRAMATE
     Dosage: 300 MG, 1X/DAY (BEDTIME)
     Route: 065
     Dates: end: 201412
  4. CALCIUM CARBONATE. [Concomitant]
     Active Substance: CALCIUM CARBONATE
     Dosage: 500 MG, 2X/DAY
     Route: 065
  5. MULTIVITAMIN [Concomitant]
     Active Substance: VITAMINS
     Route: 065
  6. TOPIRAMATE. [Suspect]
     Active Substance: TOPIRAMATE
     Indication: EPILEPSY
     Dosage: 200 MG, 1X/DAY (MORNING)
     Route: 065
     Dates: end: 201412
  7. TOPIRAMATE. [Suspect]
     Active Substance: TOPIRAMATE
     Dosage: 300 MG, 2X/DAY
     Route: 065
     Dates: start: 201412, end: 201510
  8. MAGNESIUM [Concomitant]
     Active Substance: MAGNESIUM
     Dosage: 1000 MG/5 ML
     Route: 065
  9. METHENAMINE [Concomitant]
     Active Substance: METHENAMINE
     Dosage: 1000 MG, 1X/DAY
     Route: 065
  10. PHENOBARBITAL. [Suspect]
     Active Substance: PHENOBARBITAL
     Indication: EPILEPSY
     Dosage: 32.4 MG, 2X/DAY (MORNING AND AFTERNOON)
     Route: 065
     Dates: end: 201510
  11. LEVOTHYROXINE. [Concomitant]
     Active Substance: LEVOTHYROXINE
     Dosage: 88 ?G, 1X/DAY
     Route: 065
  12. PHENOBARBITAL. [Suspect]
     Active Substance: PHENOBARBITAL
     Dosage: 32.4 MG, 3X/DAY
     Route: 065
     Dates: start: 201510, end: 201512
  13. POLYETHYLENE GLYCOL [Concomitant]
     Active Substance: POLYETHYLENE GLYCOLS
     Dosage: 17 G, 1X/DAY
     Route: 065
  14. TOPIRAMATE. [Suspect]
     Active Substance: TOPIRAMATE
     Dosage: 200 MG, 2X/DAY
     Route: 065
     Dates: start: 201510
  15. PHENOBARBITAL. [Suspect]
     Active Substance: PHENOBARBITAL
     Dosage: 64.8 MG, 1X/DAY (BEDTIME)
     Route: 065
     Dates: end: 201510

REACTIONS (2)
  - Hypothermia [Recovered/Resolved]
  - Drug interaction [Recovered/Resolved]

NARRATIVE: CASE EVENT DATE: 201502
